FAERS Safety Report 8351592-1 (Version None)
Quarter: 2012Q2

REPORT INFORMATION
  Report Type: 
  Country: None (occurrence: None)
  Receive Date: 20120511
  Receipt Date: 20120426
  Transmission Date: 20120825
  Serious: Yes (Hospitalization)
  Sender: FDA-Public Use
  Company Number: CA-BIOGENIDEC-2012BI016231

PATIENT
  Age: 45 Year
  Sex: Female

DRUGS (1)
  1. AVONEX [Suspect]
     Indication: RELAPSING-REMITTING MULTIPLE SCLEROSIS
     Route: 030
     Dates: start: 20120412

REACTIONS (6)
  - TONGUE DISORDER [None]
  - PALPITATIONS [None]
  - RASH [None]
  - NAUSEA [None]
  - ERYTHEMA [None]
  - PRURITUS [None]
